FAERS Safety Report 19200393 (Version 1)
Quarter: 2021Q2

REPORT INFORMATION
  Report Type: Spontaneous
  Country: US (occurrence: US)
  Receive Date: 20210430
  Receipt Date: 20210430
  Transmission Date: 20210717
  Serious: Yes (Other)
  Sender: FDA-Public Use
  Company Number: US-NEOS THERAPEUTICS, LP-2021NEO00015

PATIENT
  Age: 9 Year
  Sex: Male
  Weight: 30.8 kg

DRUGS (3)
  1. UNSPECIFIED CHILDRENS MULTIVITAMIN [Concomitant]
     Route: 065
  2. METHYLPHENIDATE. [Suspect]
     Active Substance: METHYLPHENIDATE
     Indication: ATTENTION DEFICIT HYPERACTIVITY DISORDER
     Dosage: 27 MG, 1X/DAY
     Route: 065
  3. GUANFACINE. [Concomitant]
     Active Substance: GUANFACINE
     Indication: ATTENTION DEFICIT HYPERACTIVITY DISORDER
     Dosage: 1 MG, 1X/DAY
     Route: 065

REACTIONS (1)
  - Dystonia [Recovered/Resolved]
